FAERS Safety Report 21972775 (Version 1)
Quarter: 2023Q1

REPORT INFORMATION
  Report Type: Spontaneous
  Country: US (occurrence: None)
  Receive Date: 20230208
  Receipt Date: 20230208
  Transmission Date: 20230418
  Serious: Yes (Death)
  Sender: FDA-Public Use
  Company Number: None

PATIENT
  Age: 66 Year
  Sex: Male
  Weight: 99 kg

DRUGS (15)
  1. PAXLOVID [Suspect]
     Active Substance: NIRMATRELVIR\RITONAVIR
  2. CAPTOPRIL [Concomitant]
     Active Substance: CAPTOPRIL
  3. 25mg Farxiga [Concomitant]
  4. 10mg Desmopressin [Concomitant]
  5. 0.1mg Ibuprofen  Skelaxin [Concomitant]
  6. 800mg Metformin [Concomitant]
  7. 500mg Naproxen [Concomitant]
  8. 500mg Testosterone [Concomitant]
  9. Joyful Joints containing D-glucosamine [Concomitant]
  10. HERBALS\TURMERIC [Concomitant]
     Active Substance: HERBALS\TURMERIC
  11. CISSUS QUADRANGULARIS [Concomitant]
  12. DIMETHYL SULFONE [Concomitant]
     Active Substance: DIMETHYL SULFONE
  13. BROMELAINS [Concomitant]
     Active Substance: BROMELAINS
  14. HYALURONIC ACID [Concomitant]
     Active Substance: HYALURONIC ACID
  15. BLACK PEPPER [Concomitant]
     Active Substance: BLACK PEPPER

REACTIONS (1)
  - Cardiac arrest [None]

NARRATIVE: CASE EVENT DATE: 20221228
